FAERS Safety Report 7476765-1 (Version None)
Quarter: 2011Q2

REPORT INFORMATION
  Report Type: 
  Country: None (occurrence: None)
  Receive Date: 20110512
  Receipt Date: 20110503
  Transmission Date: 20111010
  Serious: Yes (Other)
  Sender: FDA-Public Use
  Company Number: DE-GENZYME-THYM-1002446

PATIENT

DRUGS (6)
  1. PYRIMETHAMINE TAB [Suspect]
     Dosage: 50 MG, QD
  2. METHOTREXATE [Concomitant]
     Indication: PROPHYLAXIS AGAINST GRAFT VERSUS HOST DISEASE
  3. THYMOGLOBULIN [Suspect]
     Indication: BONE MARROW CONDITIONING REGIMEN
  4. PYRIMETHAMINE TAB [Suspect]
     Indication: TOXOPLASMOSIS
     Dosage: 200 MG, ONCE
  5. CYCLOSPORINE [Concomitant]
     Indication: PROPHYLAXIS AGAINST GRAFT VERSUS HOST DISEASE
  6. SULFADIAZINE [Suspect]
     Indication: TOXOPLASMOSIS
     Dosage: 4000 MG, QD

REACTIONS (3)
  - CEREBRAL TOXOPLASMOSIS [None]
  - POLYNEUROPATHY [None]
  - ACUTE GRAFT VERSUS HOST DISEASE IN SKIN [None]
